FAERS Safety Report 11392584 (Version 1)
Quarter: 2015Q3

REPORT INFORMATION
  Report Type: Report from Study
  Country: PR (occurrence: PR)
  Receive Date: 20150818
  Receipt Date: 20150818
  Transmission Date: 20151125
  Serious: Yes (Hospitalization, Other)
  Sender: FDA-Public Use
  Company Number: PR-ABBVIE-15K-131-1347681-00

PATIENT
  Age: 28 Year
  Sex: Female
  Weight: 73.55 kg

DRUGS (5)
  1. HUMIRA [Suspect]
     Active Substance: ADALIMUMAB
     Indication: CROHN^S DISEASE
     Dosage: 3 YEARS AGO
     Route: 058
     Dates: start: 201009, end: 201404
  2. HUMIRA [Suspect]
     Active Substance: ADALIMUMAB
     Route: 058
     Dates: start: 201501, end: 20150806
  3. HUMIRA [Suspect]
     Active Substance: ADALIMUMAB
     Route: 058
     Dates: start: 201406, end: 201411
  4. PENTASA [Concomitant]
     Active Substance: MESALAMINE
     Route: 048
  5. PENTASA [Concomitant]
     Active Substance: MESALAMINE
     Indication: CROHN^S DISEASE
     Dosage: 3 THREE TIMES DAILY
     Route: 048

REACTIONS (9)
  - Ileal perforation [Recovered/Resolved]
  - Crohn^s disease [Recovering/Resolving]
  - Feeling abnormal [Unknown]
  - Malaise [Recovered/Resolved]
  - Crohn^s disease [Recovered/Resolved]
  - Enteritis [Recovered/Resolved]
  - Intestinal operation [Unknown]
  - Weight decreased [Unknown]
  - Coagulopathy [Unknown]

NARRATIVE: CASE EVENT DATE: 2015
